FAERS Safety Report 11654529 (Version 7)
Quarter: 2015Q4

REPORT INFORMATION
  Report Type: Spontaneous
  Country: GB (occurrence: GB)
  Receive Date: 20151023
  Receipt Date: 20151230
  Transmission Date: 20160304
  Serious: Yes (Other)
  Sender: FDA-Public Use
  Company Number: GB-AMGEN-GBRSP2015090340

PATIENT
  Age: 69 Year
  Sex: Male

DRUGS (2)
  1. XGEVA [Suspect]
     Active Substance: DENOSUMAB
     Indication: PRODUCT USED FOR UNKNOWN INDICATION
     Dosage: UNK
     Route: 065
  2. ABIRATERONE [Concomitant]
     Active Substance: ABIRATERONE
     Dosage: UNK

REACTIONS (14)
  - Transfusion [Unknown]
  - Chills [Unknown]
  - Productive cough [Unknown]
  - Pain [Unknown]
  - Vomiting [Unknown]
  - Fatigue [Recovering/Resolving]
  - Contusion [Unknown]
  - Joint injury [Unknown]
  - Fall [Unknown]
  - Constipation [Unknown]
  - Arthralgia [Unknown]
  - Pallor [Unknown]
  - Haemoglobin abnormal [Unknown]
  - Dyspnoea [Unknown]

NARRATIVE: CASE EVENT DATE: 20151206
